FAERS Safety Report 24674170 (Version 2)
Quarter: 2025Q1

REPORT INFORMATION
  Report Type: Spontaneous
  Country: US (occurrence: US)
  Receive Date: 20241128
  Receipt Date: 20250303
  Transmission Date: 20250409
  Serious: Yes (Life-Threatening, Hospitalization, Other)
  Sender: BRISTOL-MYERS SQUIBB COMPANY
  Company Number: US-BRISTOL-MYERS SQUIBB COMPANY-2024-181299

PATIENT
  Age: 78 Year
  Sex: Male
  Weight: 87.77 kg

DRUGS (1)
  1. REBLOZYL [Suspect]
     Active Substance: LUSPATERCEPT-AAMT
     Indication: Product used for unknown indication
     Dates: start: 20241114

REACTIONS (2)
  - Necrotising fasciitis [Unknown]
  - Bacterial sepsis [Unknown]

NARRATIVE: CASE EVENT DATE: 20241115
